FAERS Safety Report 19518979 (Version 1)
Quarter: 2021Q3

REPORT INFORMATION
  Report Type: Spontaneous
  Country: US (occurrence: US)
  Receive Date: 20210709
  Receipt Date: 20210709
  Transmission Date: 20211014
  Serious: Yes (Other)
  Sender: FDA-Public Use
  Company Number: None

PATIENT
  Age: 70 Year
  Sex: Male

DRUGS (1)
  1. HUMIRA [Suspect]
     Active Substance: ADALIMUMAB
     Indication: PSORIATIC ARTHROPATHY
     Dates: start: 20210620, end: 20210620

REACTIONS (5)
  - Adverse drug reaction [None]
  - Myalgia [None]
  - Hyperhidrosis [None]
  - Nausea [None]
  - Eyelid function disorder [None]

NARRATIVE: CASE EVENT DATE: 20210620
